FAERS Safety Report 19929488 (Version 1)
Quarter: 2021Q4

REPORT INFORMATION
  Report Type: Spontaneous
  Country: US (occurrence: US)
  Receive Date: 20211007
  Receipt Date: 20211007
  Transmission Date: 20220303
  Serious: No
  Sender: FDA-Public Use
  Company Number: US-PFIZER INC-2021564753

PATIENT
  Age: 59 Year
  Sex: Female
  Weight: 122.47 kg

DRUGS (1)
  1. CLINDAMYCIN [Suspect]
     Active Substance: CLINDAMYCIN
     Dosage: 200 MG, 4X/DAY

REACTIONS (1)
  - Therapeutic product effect delayed [Unknown]
